FAERS Safety Report 21797016 (Version 2)
Quarter: 2023Q1

REPORT INFORMATION
  Report Type: Report from Study
  Country: DE (occurrence: None)
  Receive Date: 20221230
  Receipt Date: 20230228
  Transmission Date: 20230418
  Serious: Yes (Hospitalization)
  Sender: FDA-Public Use
  Company Number: DE-ROCHE-3208848

PATIENT
  Age: 60 Year
  Sex: Male

DRUGS (2)
  1. OBINUTUZUMAB [Suspect]
     Active Substance: OBINUTUZUMAB
     Indication: Chronic lymphocytic leukaemia
     Dosage: LAST DOSE OF 16/MAY/2022, THE LAST DOSE OF OBINUTUZUMAB WAS 1000 MG ON 16/JUN/2022
     Route: 042
     Dates: start: 20211220
  2. VENETOCLAX [Suspect]
     Active Substance: VENETOCLAX
     Indication: Chronic lymphocytic leukaemia
     Dosage: THE LAST DOSE OF VENETOCLAX WAS 400 MG ON 26/OCT/2022, 14/NOV/2022
     Route: 048
     Dates: start: 20220117

REACTIONS (2)
  - Pneumonia [Not Recovered/Not Resolved]
  - COVID-19 pneumonia [Recovered/Resolved]

NARRATIVE: CASE EVENT DATE: 20221026
